FAERS Safety Report 17598255 (Version 1)
Quarter: 2020Q1

REPORT INFORMATION
  Report Type: Spontaneous
  Country: US (occurrence: US)
  Receive Date: 20200330
  Receipt Date: 20200330
  Transmission Date: 20200409
  Serious: Yes (Hospitalization)
  Sender: FDA-Public Use
  Company Number: NVSC2020US086160

PATIENT
  Sex: Female

DRUGS (1)
  1. EXELON PATCH [Suspect]
     Active Substance: RIVASTIGMINE
     Indication: PRODUCT USED FOR UNKNOWN INDICATION
     Dosage: UNK
     Route: 062

REACTIONS (8)
  - Aggression [Unknown]
  - Feeding disorder [Unknown]
  - Therapy non-responder [Unknown]
  - Diarrhoea [Unknown]
  - Dehydration [Unknown]
  - Agitation [Unknown]
  - Lethargy [Unknown]
  - Fatigue [Unknown]
